FAERS Safety Report 9685885 (Version 1)
Quarter: 2013Q4

REPORT INFORMATION
  Report Type: Spontaneous
  Country: IT (occurrence: None)
  Receive Date: 20131108
  Receipt Date: 20131108
  Transmission Date: 20140711
  Serious: Yes (Other)
  Sender: FDA-Public Use
  Company Number: DSM-2013-01040

PATIENT
  Age: 48 Year
  Sex: Male
  Weight: 70 kg

DRUGS (1)
  1. PLAUNAC [Suspect]
     Indication: HYPERTENSION
     Route: 048
     Dates: start: 20131014, end: 20131025

REACTIONS (1)
  - Depressed level of consciousness [None]
